FAERS Safety Report 7474611-3 (Version None)
Quarter: 2011Q2

REPORT INFORMATION
  Report Type: 
  Country: None (occurrence: None)
  Receive Date: 20110503
  Receipt Date: 20110426
  Transmission Date: 20111010
  Serious: Yes (Hospitalization)
  Sender: FDA-Public Use
  Company Number: 2011S1000570

PATIENT
  Age: 79 Year
  Sex: Female
  Weight: 52 kg

DRUGS (6)
  1. LIVALO [Suspect]
     Indication: HYPERCHOLESTEROLAEMIA
     Dosage: 2 MG, 1X, PO
     Route: 048
     Dates: start: 20110411, end: 20110412
  2. SELBEX [Concomitant]
  3. PREDNISOLONE [Concomitant]
  4. BONALON [Concomitant]
  5. LOXONIN [Concomitant]
  6. OLMESARTAN MEDOXOMIL [Concomitant]

REACTIONS (2)
  - TONGUE DISCOLOURATION [None]
  - GLOSSITIS [None]
